FAERS Safety Report 23172961 (Version 1)
Quarter: 2023Q4

REPORT INFORMATION
  Report Type: Spontaneous
  Country: US (occurrence: None)
  Receive Date: 20231110
  Receipt Date: 20231110
  Transmission Date: 20240109
  Serious: Yes (Other)
  Sender: FDA-Public Use
  Company Number: US-FARMAPROD-202311-3228

PATIENT
  Age: 46 Year
  Sex: Male

DRUGS (1)
  1. OXERVATE [Suspect]
     Active Substance: CENEGERMIN-BKBJ
     Indication: Neurotrophic keratopathy
     Route: 047

REACTIONS (5)
  - Vitreous haemorrhage [Unknown]
  - Tractional retinal detachment [Unknown]
  - Pulmonary tuberculosis [Unknown]
  - Corneal neovascularisation [Unknown]
  - Intraocular pressure decreased [Unknown]
